FAERS Safety Report 17502054 (Version 1)
Quarter: 2020Q1

REPORT INFORMATION
  Report Type: Spontaneous
  Country: US (occurrence: US)
  Receive Date: 20200224
  Receipt Date: 20200224
  Transmission Date: 20200409
  Serious: Yes (Hospitalization, Disabling)
  Sender: FDA-Public Use
  Company Number: None

PATIENT
  Age: 74 Year
  Sex: Male
  Weight: 117.94 kg

DRUGS (1)
  1. CIPRO [Suspect]
     Active Substance: CIPROFLOXACIN HYDROCHLORIDE
     Indication: PROPHYLAXIS
     Dosage: ?          OTHER FREQUENCY:AM + PM;?
     Route: 048
     Dates: start: 20200123, end: 20200127

REACTIONS (8)
  - Flushing [None]
  - Fatigue [None]
  - Hypopnoea [None]
  - Pallor [None]
  - Hallucination [None]
  - Screaming [None]
  - Asthenia [None]
  - Anxiety [None]

NARRATIVE: CASE EVENT DATE: 20200125
